FAERS Safety Report 9571391 (Version 1)
Quarter: 2013Q3

REPORT INFORMATION
  Report Type: Spontaneous
  Country: US (occurrence: None)
  Receive Date: 20130927
  Receipt Date: 20130927
  Transmission Date: 20140515
  Serious: Yes (Disabling)
  Sender: FDA-Public Use
  Company Number: None

PATIENT
  Age: 58 Year
  Sex: 0

DRUGS (1)
  1. LEVAQUIN [Suspect]
     Indication: RESPIRATORY TRACT INFECTION
     Dates: start: 20130909, end: 20130919

REACTIONS (3)
  - Arthralgia [None]
  - Pain in extremity [None]
  - Bedridden [None]
